FAERS Safety Report 21828357 (Version 1)
Quarter: 2023Q1

REPORT INFORMATION
  Report Type: Report from Study
  Country: US (occurrence: US)
  Receive Date: 20230106
  Receipt Date: 20230106
  Transmission Date: 20230417
  Serious: No
  Sender: FDA-Public Use
  Company Number: US-ABBVIE-4231127

PATIENT
  Sex: Female

DRUGS (1)
  1. HUMIRA [Suspect]
     Active Substance: ADALIMUMAB
     Indication: Rheumatoid arthritis
     Route: 058

REACTIONS (7)
  - Rheumatoid arthritis [Unknown]
  - Erythema [Unknown]
  - Arthropathy [Unknown]
  - Pruritus [Unknown]
  - Psoriasis [Unknown]
  - Eczema [Unknown]
  - Skin disorder [Unknown]
